FAERS Safety Report 9343942 (Version 1)
Quarter: 2013Q2

REPORT INFORMATION
  Report Type: Spontaneous
  Country: DK (occurrence: DK)
  Receive Date: 20130612
  Receipt Date: 20130612
  Transmission Date: 20140414
  Serious: Yes (Hospitalization)
  Sender: FDA-Public Use
  Company Number: DK-AMGEN-DNKSP2012084506

PATIENT
  Age: 67 Year
  Sex: Male
  Weight: 77 kg

DRUGS (6)
  1. FILGRASTIM [Suspect]
     Indication: DIFFUSE LARGE B-CELL LYMPHOMA
     Dosage: 6 MG PER DAY
     Dates: start: 20110120
  2. DOXORUBICIN /00330902/ [Suspect]
     Indication: DIFFUSE LARGE B-CELL LYMPHOMA
     Dosage: 105 MG, QD
     Route: 042
     Dates: start: 20110117
  3. PREDNISOLONE [Suspect]
     Indication: DIFFUSE LARGE B-CELL LYMPHOMA
     Dosage: 100 MG, QD
     Route: 048
     Dates: start: 20110117
  4. CYCLOPHOSPHAMIDE [Suspect]
     Indication: DIFFUSE LARGE B-CELL LYMPHOMA
     Dosage: 1600 MG, QD
     Route: 042
     Dates: start: 20110117
  5. RITUXIMAB [Suspect]
     Indication: DIFFUSE LARGE B-CELL LYMPHOMA
     Dosage: 750 MG, UNK
     Route: 042
     Dates: start: 20110117
  6. VINCRISTINE [Suspect]
     Indication: DIFFUSE LARGE B-CELL LYMPHOMA
     Dosage: 20 MG, QD
     Route: 042
     Dates: start: 20110117

REACTIONS (1)
  - Haemoglobin decreased [Recovered/Resolved]
